FAERS Safety Report 12165475 (Version 3)
Quarter: 2016Q2

REPORT INFORMATION
  Report Type: Spontaneous
  Country: US (occurrence: US)
  Receive Date: 20160309
  Receipt Date: 20160425
  Transmission Date: 20160815
  Serious: Yes (Death)
  Sender: FDA-Public Use
  Company Number: US-CELGENEUS-USA-2015124075

PATIENT
  Sex: Male

DRUGS (2)
  1. REVLIMID [Suspect]
     Active Substance: LENALIDOMIDE
     Indication: PLASMA CELL MYELOMA
     Route: 048
     Dates: start: 20151119
  2. REVLIMID [Suspect]
     Active Substance: LENALIDOMIDE
     Route: 048

REACTIONS (8)
  - Diabetes mellitus [Fatal]
  - Renal failure [Fatal]
  - Malaise [Unknown]
  - Plasma cell myeloma [Unknown]
  - Drug ineffective [Recovered/Resolved with Sequelae]
  - Sepsis [Fatal]
  - Confusional state [Unknown]
  - Pneumonia [Fatal]

NARRATIVE: CASE EVENT DATE: 2015
